FAERS Safety Report 22641596 (Version 3)
Quarter: 2023Q4

REPORT INFORMATION
  Report Type: Spontaneous
  Country: CN (occurrence: CN)
  Receive Date: 20230626
  Receipt Date: 20231006
  Transmission Date: 20240110
  Serious: Yes (Death, Life-Threatening, Other)
  Sender: FDA-Public Use
  Company Number: CN-BAYER-2023A088454

PATIENT
  Age: 62 Year
  Sex: Male
  Weight: 76 kg

DRUGS (3)
  1. ULTRAVIST [Suspect]
     Active Substance: IOPROMIDE
     Indication: Arteriogram carotid
     Dosage: 100 ML, ONCE
     Route: 042
     Dates: start: 20230605, end: 20230605
  2. ULTRAVIST [Suspect]
     Active Substance: IOPROMIDE
     Indication: Angiogram cerebral
  3. ULTRAVIST [Suspect]
     Active Substance: IOPROMIDE
     Indication: Cerebral infarction

REACTIONS (26)
  - Anaphylactic shock [Fatal]
  - Vertebrobasilar stroke [Fatal]
  - Respiratory arrest [None]
  - Carotid pulse decreased [None]
  - Coma [None]
  - Laryngeal oedema [None]
  - Bronchospasm [None]
  - Cerebral hypoperfusion [None]
  - Gaze palsy [None]
  - Quadriplegia [None]
  - Gastrointestinal haemorrhage [None]
  - Cardiac failure [None]
  - Renal failure [None]
  - Dyspnoea [None]
  - Dizziness [None]
  - Urinary incontinence [None]
  - Cyanosis [None]
  - Hyperhidrosis [None]
  - Cold sweat [None]
  - Rash [None]
  - Blood pressure decreased [None]
  - Heart rate decreased [None]
  - Pyrexia [None]
  - Mydriasis [None]
  - Pupillary reflex impaired [Recovering/Resolving]
  - Oxygen saturation decreased [None]

NARRATIVE: CASE EVENT DATE: 20230601
